FAERS Safety Report 25780003 (Version 1)
Quarter: 2025Q3

REPORT INFORMATION
  Report Type: Report from Study
  Country: KR (occurrence: KR)
  Receive Date: 20250909
  Receipt Date: 20250909
  Transmission Date: 20251020
  Serious: Yes (Hospitalization, Other)
  Sender: ALEXION PHARMACEUTICALS
  Company Number: KR-GRUNENTHAL-2025-114102

PATIENT
  Age: 51 Year
  Sex: Male
  Weight: 79 kg

DRUGS (21)
  1. ESOMEPRAZOLE [Suspect]
     Active Substance: ESOMEPRAZOLE
     Dates: start: 20190818, end: 20190818
  2. TRAMADOL HYDROCHLORIDE [Suspect]
     Active Substance: TRAMADOL HYDROCHLORIDE
     Indication: Peptic ulcer
     Dates: start: 20191118, end: 20191118
  3. TRAMADOL HYDROCHLORIDE [Suspect]
     Active Substance: TRAMADOL HYDROCHLORIDE
     Dates: start: 20190817, end: 20190817
  4. PANTOPRAZOLE SODIUM [Suspect]
     Active Substance: PANTOPRAZOLE SODIUM
     Indication: Peptic ulcer
  5. SIMETHICONE (DIMETHICONE) [Suspect]
     Active Substance: DIMETHICONE
     Indication: Peptic ulcer
     Dates: start: 20190817, end: 20190819
  6. CIMETIDINE [Suspect]
     Active Substance: CIMETIDINE
     Dates: start: 20190817, end: 20190819
  7. SCOPOLAMINE [Suspect]
     Active Substance: SCOPOLAMINE
     Indication: Peptic ulcer
     Dates: start: 20190817, end: 20191118
  8. URSODIOL [Suspect]
     Active Substance: URSODIOL
     Indication: Peptic ulcer
     Dates: start: 20190817, end: 20190819
  9. CIMETROPIUM BROMIDE [Suspect]
     Active Substance: CIMETROPIUM BROMIDE
     Indication: Peptic ulcer
  10. NEFOPAM HYDROCHLORIDE [Suspect]
     Active Substance: NEFOPAM HYDROCHLORIDE
     Indication: Peptic ulcer
  11. ACETAMINOPHEN [Suspect]
     Active Substance: ACETAMINOPHEN
     Indication: Peptic ulcer
     Dates: start: 20191118, end: 20191120
  12. IBUPROFEN [Suspect]
     Active Substance: IBUPROFEN
     Indication: Peptic ulcer
     Dates: start: 20190817, end: 20190819
  13. KETOROLAC TROMETHAMINE [Suspect]
     Active Substance: KETOROLAC TROMETHAMINE
     Indication: Peptic ulcer
  14. SODIUM PHOSPHATE, MONOBASIC [Suspect]
     Active Substance: SODIUM PHOSPHATE, MONOBASIC
     Indication: Peptic ulcer
  15. METOCLOPRAMIDE HYDROCHLORIDE [Suspect]
     Active Substance: METOCLOPRAMIDE HYDROCHLORIDE
     Indication: Peptic ulcer
  16. LANSOPRAZOLE [Suspect]
     Active Substance: LANSOPRAZOLE
     Indication: Peptic ulcer
     Dates: start: 20190817, end: 20190819
  17. CEFACLOR [Suspect]
     Active Substance: CEFACLOR
     Indication: Peptic ulcer
     Dates: start: 20191118, end: 20191120
  18. EPERISONE HYDROCHLORIDE [Suspect]
     Active Substance: EPERISONE HYDROCHLORIDE
     Indication: Peptic ulcer
  19. TIROPRAMIDE HYDROCHLORIDE [Suspect]
     Active Substance: TIROPRAMIDE HYDROCHLORIDE
     Indication: Peptic ulcer
     Dates: start: 20190817, end: 20190819
  20. SODIUM ALGINATE [Suspect]
     Active Substance: SODIUM ALGINATE
     Indication: Peptic ulcer
     Dates: start: 20190817, end: 20190819
  21. ATORVASTATIN CALCIUM [Concomitant]
     Active Substance: ATORVASTATIN CALCIUM
     Indication: Peptic ulcer

REACTIONS (4)
  - Cholelithiasis [Recovered/Resolved]
  - Cholecystitis acute [Recovered/Resolved]
  - Abdominal pain [Recovered/Resolved]
  - Gastritis [Recovered/Resolved]

NARRATIVE: CASE EVENT DATE: 20190817
